FAERS Safety Report 6696232-2 (Version None)
Quarter: 2010Q2

REPORT INFORMATION
  Report Type: 
  Country: None (occurrence: None)
  Receive Date: 20100421
  Receipt Date: 20100409
  Transmission Date: 20101027
  Serious: Yes (Other)
  Sender: FDA-Public Use
  Company Number: 2010SP021857

PATIENT
  Age: 46 Year
  Sex: Female

DRUGS (2)
  1. MERCILON (DESOGESTREL/ETHINYLESTRADIOL /00570801/) [Suspect]
  2. DEROXAT [Concomitant]

REACTIONS (2)
  - BENIGN BREAST NEOPLASM [None]
  - HEADACHE [None]
